FAERS Safety Report 8547354-2 (Version None)
Quarter: 2012Q3

REPORT INFORMATION
  Report Type: 
  Country: None (occurrence: None)
  Receive Date: 20120727
  Receipt Date: 20120321
  Transmission Date: 20120928
  Serious: No
  Sender: FDA-Public Use
  Company Number: US-ASTRAZENECA-2012SE19452

PATIENT
  Age: 27 Year
  Sex: Male

DRUGS (4)
  1. HALOPERIDOL [Suspect]
  2. ATIVAN [Concomitant]
  3. TEGRETOL [Concomitant]
  4. SEROQUEL [Suspect]
     Indication: BIPOLAR DISORDER
     Route: 048
     Dates: start: 20111101

REACTIONS (3)
  - ADVERSE EVENT [None]
  - DRUG DOSE OMISSION [None]
  - TREMOR [None]
